FAERS Safety Report 10018793 (Version 2)
Quarter: 2014Q1

REPORT INFORMATION
  Report Type: Spontaneous
  Country: US (occurrence: US)
  Receive Date: 20140318
  Receipt Date: 20140320
  Transmission Date: 20141002
  Serious: No
  Sender: FDA-Public Use
  Company Number: US-009507513-1403USA002178

PATIENT
  Age: 84 Year
  Sex: Female

DRUGS (8)
  1. OXYTROL FOR WOMEN [Suspect]
     Indication: INCONTINENCE
     Dosage: 1 DF, Q4D
     Route: 062
     Dates: start: 20140217, end: 20140220
  2. BROVANA [Concomitant]
     Indication: CHRONIC OBSTRUCTIVE PULMONARY DISEASE
     Dosage: UNK, UNKNOWN
  3. SPIRIVA [Concomitant]
     Indication: CHRONIC OBSTRUCTIVE PULMONARY DISEASE
     Dosage: UNK, UNKNOWN
  4. VENTOLIN (ALBUTEROL) [Concomitant]
     Indication: CHRONIC OBSTRUCTIVE PULMONARY DISEASE
     Dosage: UNK, UNKNOWN
  5. TRAMADOL HYDROCHLORIDE [Concomitant]
     Indication: BACK DISORDER
     Dosage: UNK, UNKNOWN
  6. AMLODIPINE BESYLATE (+) BENAZEPRIL HYDROCHLORIDE [Concomitant]
     Indication: HYPERTENSION
     Dosage: UNK, UNKNOWN
  7. ECOTRIN [Concomitant]
     Indication: HYPERTENSION
     Dosage: UNK, UNKNOWN
  8. ATORVASTATIN [Concomitant]
     Indication: BLOOD CHOLESTEROL
     Dosage: UNK, UNKNOWN

REACTIONS (3)
  - Inflammation [Recovering/Resolving]
  - Application site papules [Unknown]
  - Application site erythema [Unknown]
